FAERS Safety Report 11977652 (Version 3)
Quarter: 2017Q4

REPORT INFORMATION
  Report Type: Spontaneous
  Country: GB (occurrence: GB)
  Receive Date: 20160129
  Receipt Date: 20171231
  Transmission Date: 20180320
  Serious: Yes (Hospitalization)
  Sender: FDA-Public Use
  Company Number: GB-TEVA-628790ACC

PATIENT
  Sex: Male

DRUGS (4)
  1. PREDNISOLONE. [Suspect]
     Active Substance: PREDNISOLONE
     Indication: IMMUNOSUPPRESSION
     Route: 048
  2. MYFENAX [Suspect]
     Active Substance: MYCOPHENOLATE MOFETIL
     Indication: IMMUNOSUPPRESSION
     Route: 048
  3. SANDOZ ADOPORT [Suspect]
     Active Substance: TACROLIMUS
     Indication: IMMUNOSUPPRESSION
     Route: 048
  4. SANDOZ ADOPORT [Suspect]
     Active Substance: TACROLIMUS
     Route: 048

REACTIONS (1)
  - Cerebral disorder [Unknown]
